FAERS Safety Report 9519203 (Version 1)
Quarter: 2013Q3

REPORT INFORMATION
  Report Type: Spontaneous
  Country: US (occurrence: None)
  Receive Date: 20130911
  Receipt Date: 20130911
  Transmission Date: 20140515
  Serious: Yes (Disabling)
  Sender: FDA-Public Use
  Company Number: None

PATIENT
  Age: 45 Year
  Sex: Female
  Weight: 54.43 kg

DRUGS (1)
  1. NEXIUM [Suspect]
     Indication: ABDOMINAL PAIN UPPER

REACTIONS (8)
  - Gastrooesophageal reflux disease [None]
  - Aphonia [None]
  - Oropharyngeal pain [None]
  - Throat tightness [None]
  - Sensation of foreign body [None]
  - Epiglottic oedema [None]
  - Choking [None]
  - Dysphagia [None]
